FAERS Safety Report 20056943 (Version 1)
Quarter: 2021Q4

REPORT INFORMATION
  Report Type: Spontaneous
  Country: US (occurrence: None)
  Receive Date: 20211110
  Receipt Date: 20211110
  Transmission Date: 20220303
  Serious: No
  Sender: FDA-Public Use
  Company Number: None

PATIENT
  Age: 42 Year
  Sex: Male

DRUGS (1)
  1. MAVYRET [Suspect]
     Active Substance: GLECAPREVIR\PIBRENTASVIR
     Dosage: FREQUENCY : DAILY; 100/40?
     Route: 048
     Dates: start: 202110

REACTIONS (2)
  - Hepatic pain [None]
  - Headache [None]

NARRATIVE: CASE EVENT DATE: 20211001
